FAERS Safety Report 8259583-6 (Version None)
Quarter: 2012Q2

REPORT INFORMATION
  Report Type: 
  Country: None (occurrence: None)
  Receive Date: 20120404
  Receipt Date: 20120326
  Transmission Date: 20120825
  Serious: Yes (Other)
  Sender: FDA-Public Use
  Company Number: PHHY2012BR016794

PATIENT
  Sex: Female

DRUGS (3)
  1. DESOGESTREL AND ETHINYL ESTRADIOL [Concomitant]
     Indication: CONTRACEPTION
     Dosage: 1 DF, DAILY
  2. DIOVAN HCT [Suspect]
     Dosage: 0.5 DF(160/12.5 MG), DAILY
     Dates: start: 20120219, end: 20120220
  3. DIOVAN HCT [Suspect]
     Indication: HYPERTENSION
     Dosage: 1 DF (160/12.5 MG), DAILY
     Dates: start: 20111229

REACTIONS (5)
  - HYPOTENSION [None]
  - CHOLELITHIASIS [None]
  - UMBILICAL HERNIA [None]
  - WRONG TECHNIQUE IN DRUG USAGE PROCESS [None]
  - FEEDING DISORDER [None]
